FAERS Safety Report 19355805 (Version 1)
Quarter: 2021Q2

REPORT INFORMATION
  Report Type: Spontaneous
  Country: US (occurrence: US)
  Receive Date: 20210601
  Receipt Date: 20210601
  Transmission Date: 20210717
  Serious: Yes (Other)
  Sender: FDA-Public Use
  Company Number: None

PATIENT
  Age: 39 Year
  Sex: Male
  Weight: 162.1 kg

DRUGS (2)
  1. PROAIR HFA [Suspect]
     Active Substance: ALBUTEROL SULFATE
     Indication: BRONCHOSPASM
     Dosage: ?          OTHER FREQUENCY:2 PUFFS Q 6H;OTHER ROUTE:INHALE INTO THE LUNGS ORAL?
     Route: 048
     Dates: end: 20210601
  2. ALBUTEROL HFA 90MCG 90 MCG INH [Suspect]
     Active Substance: ALBUTEROL SULFATE
     Indication: BRONCHOSPASM
     Dosage: ?          OTHER FREQUENCY:2 PUFFS Q 6H;OTHER ROUTE:INHALE INTO THE LUNGS ORAL?
     Dates: start: 20210122, end: 20210211

REACTIONS (2)
  - Nausea [None]
  - Feeling jittery [None]

NARRATIVE: CASE EVENT DATE: 20210211
